FAERS Safety Report 9267118 (Version 1)
Quarter: 2013Q2

REPORT INFORMATION
  Report Type: Spontaneous
  Country: US (occurrence: US)
  Receive Date: 20130502
  Receipt Date: 20130502
  Transmission Date: 20140414
  Serious: Yes (Death, Hospitalization)
  Sender: FDA-Public Use
  Company Number: US-COVIDIEN/TYCO HEALTHCARE/MALLINCKRODT-T201204656

PATIENT
  Age: 32 Year
  Sex: Male

DRUGS (1)
  1. METHADOSE [Suspect]
     Indication: PAIN
     Dosage: UNK MG, UNK

REACTIONS (3)
  - Leukoencephalopathy [Not Recovered/Not Resolved]
  - Overdose [Unknown]
  - Drug diversion [Unknown]
